FAERS Safety Report 13753102 (Version 2)
Quarter: 2017Q3

REPORT INFORMATION
  Report Type: Spontaneous
  Country: US (occurrence: US)
  Receive Date: 20170714
  Receipt Date: 20170802
  Transmission Date: 20171127
  Serious: No
  Sender: FDA-Public Use
  Company Number: US-EISAI MEDICAL RESEARCH-EC-2017-028985

PATIENT
  Age: 25 Year
  Sex: Male
  Weight: 44 kg

DRUGS (8)
  1. ONFI [Concomitant]
     Active Substance: CLOBAZAM
     Indication: EPILEPSY
     Route: 048
     Dates: start: 20131217
  2. RUFINAMIDE [Concomitant]
     Active Substance: RUFINAMIDE
     Dosage: DOSE TITRATION (UNKNOWN DOSE)
     Route: 048
  3. BRIVIACT [Concomitant]
     Active Substance: BRIVARACETAM
     Indication: EPILEPSY
     Route: 048
     Dates: start: 20170412
  4. RUFINAMIDE [Concomitant]
     Active Substance: RUFINAMIDE
     Indication: EPILEPSY
     Route: 048
     Dates: start: 20101005
  5. FYCOMPA [Suspect]
     Active Substance: PERAMPANEL
     Indication: EPILEPSY
     Route: 048
     Dates: start: 20170622, end: 20170703
  6. TROKENDI [Interacting]
     Active Substance: TOPIRAMATE
     Dosage: REDUCE DOSE (DOSE UNKNOWN)
     Route: 048
     Dates: start: 20170629
  7. FYCOMPA [Interacting]
     Active Substance: PERAMPANEL
     Route: 048
     Dates: start: 20170704
  8. TROKENDI [Interacting]
     Active Substance: TOPIRAMATE
     Indication: EPILEPSY
     Route: 048
     Dates: start: 20131007, end: 20170628

REACTIONS (3)
  - Vision blurred [Unknown]
  - Drug interaction [Unknown]
  - Diplopia [Unknown]

NARRATIVE: CASE EVENT DATE: 20170629
